FAERS Safety Report 5798839-3 (Version None)
Quarter: 2008Q2

REPORT INFORMATION
  Report Type: 
  Country: None (occurrence: None)
  Receive Date: 20080630
  Receipt Date: 20080617
  Transmission Date: 20081010
  Serious: Yes (Life-Threatening)
  Sender: FDA-Public Use
  Company Number: 2008S1010543

PATIENT
  Age: 71 Year
  Sex: Female

DRUGS (5)
  1. AZATHIOPRINE [Suspect]
     Indication: AUTOIMMUNE HEPATITIS
     Dosage: 150 MG ORAL, 150 MG; ORAL
     Route: 048
     Dates: start: 19970101, end: 20080101
  2. AZATHIOPRINE [Suspect]
     Indication: AUTOIMMUNE HEPATITIS
     Dosage: 150 MG ORAL, 150 MG; ORAL
     Route: 048
     Dates: start: 19970101, end: 20080101
  3. METFORMIN HCL [Concomitant]
  4. TAMOXIFEN CITRATE [Concomitant]
  5. LEVOTHYROXINE SODIUM [Concomitant]

REACTIONS (2)
  - BREAST CANCER FEMALE [None]
  - METASTATIC NEOPLASM [None]
